FAERS Safety Report 10173020 (Version 2)
Quarter: 2014Q3

REPORT INFORMATION
  Report Type: Report from Study
  Country: DE (occurrence: DE)
  Receive Date: 20140515
  Receipt Date: 20140730
  Transmission Date: 20150326
  Serious: Yes (Death, Hospitalization)
  Sender: FDA-Public Use
  Company Number: PHHY2014DE058498

PATIENT
  Sex: Female

DRUGS (2)
  1. VIDAZA [Concomitant]
     Active Substance: AZACITIDINE
  2. ICL670A [Suspect]
     Active Substance: DEFERASIROX
     Indication: MYELODYSPLASTIC SYNDROME
     Dosage: UNK
     Dates: start: 20130713, end: 20140116

REACTIONS (3)
  - General physical health deterioration [Not Recovered/Not Resolved]
  - Myelodysplastic syndrome transformation [Fatal]
  - Acute myeloid leukaemia [Fatal]

NARRATIVE: CASE EVENT DATE: 20140319
